FAERS Safety Report 7599744-2 (Version None)
Quarter: 2011Q3

REPORT INFORMATION
  Report Type: 
  Country: None (occurrence: None)
  Receive Date: 20110711
  Receipt Date: 20110627
  Transmission Date: 20111222
  Serious: Yes (Hospitalization, Other)
  Sender: FDA-Public Use
  Company Number: FR-BAYER-2011-027941

PATIENT
  Age: 63 Year
  Sex: Male
  Weight: 85 kg

DRUGS (46)
  1. ERLOTINIB HYDROCHLORIDE [Suspect]
     Dosage: 150 MG, QD
     Route: 048
     Dates: start: 20110118, end: 20110228
  2. METFORMIN HCL [Concomitant]
     Indication: TYPE 2 DIABETES MELLITUS
     Dosage: 3000 MG, UNK
     Dates: start: 20091201, end: 20110322
  3. STOMATOLOGICALS, MOUTH PREPARATIONS [Concomitant]
     Indication: PROPHYLAXIS
     Dosage: UNK UNK, PRN
     Dates: start: 20101005, end: 20101026
  4. DEXERYL [GLYCEROL,PARAFFIN, LIQUID,WHITE SOFT PARAFFIN] [Concomitant]
     Indication: DRY SKIN
     Dosage: 3 APPL/DAY
     Dates: start: 20101005, end: 20110411
  5. DEXERYL [GLYCEROL,PARAFFIN, LIQUID,WHITE SOFT PARAFFIN] [Concomitant]
     Indication: SKIN FISSURES
  6. TOPALGIC [SUPROFEN] [Concomitant]
     Indication: HEADACHE
     Dosage: 300 MG/DAY PRN
     Dates: start: 20101026, end: 20101116
  7. VIALEBEX [Concomitant]
     Indication: ASCITES
     Dosage: 100 ML, UNK
     Dates: start: 20110406, end: 20110406
  8. PREDNISOLONE [Concomitant]
     Indication: PAIN PROPHYLAXIS
     Dosage: 40 MG
     Dates: start: 20110530
  9. ERLOTINIB HYDROCHLORIDE [Suspect]
     Indication: HEPATIC NEOPLASM MALIGNANT
     Dosage: 150 MG, QD
     Route: 048
     Dates: start: 20100914, end: 20101025
  10. LANTUS [Concomitant]
     Indication: TYPE 2 DIABETES MELLITUS
     Dosage: 20 U, UNK
     Dates: start: 20091201
  11. XENETIX [Concomitant]
     Indication: SCAN WITH CONTRAST
     Dosage: 140 ML
     Dates: start: 20101208, end: 20110524
  12. DOTAREM [Concomitant]
     Indication: NUCLEAR MAGNETIC RESONANCE IMAGING
     Dosage: 20 ML, UNK
     Dates: start: 20100831, end: 20101208
  13. IMODIUM [Concomitant]
     Indication: PROPHYLAXIS
     Dosage: UNK
     Dates: start: 20101001, end: 20101101
  14. STOMATOLOGICALS, MOUTH PREPARATIONS [Concomitant]
     Indication: MUCOSAL INFLAMMATION
     Dosage: UNK UNK, PRN
     Dates: start: 20101027, end: 20110411
  15. VOLUVEN [Concomitant]
     Indication: PROPHYLAXIS
     Dosage: 500 ML
     Dates: start: 20110524, end: 20110524
  16. SOMATULINE LP [Concomitant]
     Indication: INTESTINAL OBSTRUCTION
     Dosage: 30 MG
     Dates: start: 20110525, end: 20110530
  17. ERLOTINIB HYDROCHLORIDE [Suspect]
     Dosage: 150 MG, QD
     Route: 048
     Dates: start: 20110301
  18. TRANXENE [Concomitant]
     Indication: ANXIETY
     Dosage: INTERMITTENT
     Dates: start: 20100101, end: 20101001
  19. IMODIUM [Concomitant]
     Indication: DIARRHOEA
     Dosage: UNK
     Dates: start: 20101001, end: 20101001
  20. IMODIUM [Concomitant]
     Indication: FAECAL INCONTINENCE
     Dosage: 2 MG
     Dates: start: 20101230, end: 20110207
  21. IMODIUM [Concomitant]
     Dosage: 6 MG
     Dates: start: 20110208, end: 20110411
  22. TIORFAN [Concomitant]
     Indication: PROPHYLAXIS
     Dosage: 100MG AS NEEDED
     Dates: start: 20110503
  23. OMEPRAZOLE [Concomitant]
     Indication: ODYNOPHAGIA
     Dosage: UNK
     Dates: start: 20110525, end: 20110530
  24. ATARAX [Concomitant]
     Indication: INSOMNIA
     Dosage: 50 MG
     Dates: start: 20110525
  25. LEXOMIL [Concomitant]
     Indication: PROPHYLAXIS
     Dosage: 4.5 MG PRN
     Dates: start: 20110530
  26. SORAFENIB (RAF KINASE INHIBITOR) [Suspect]
     Dosage: 400 MG, BID
     Route: 048
     Dates: start: 20110301
  27. PROPRANOLOL [Concomitant]
     Indication: VARICES OESOPHAGEAL
     Dosage: 160 MG, UNK
     Dates: start: 20100901
  28. MYCOSTER [Concomitant]
     Indication: GROIN INFECTION
     Dosage: UNK
     Dates: start: 20110301, end: 20110411
  29. ERLOTINIB HYDROCHLORIDE [Suspect]
     Dosage: 150 MG, QD
     Route: 048
     Dates: end: 20110504
  30. SORAFENIB (RAF KINASE INHIBITOR) [Suspect]
     Indication: HEPATIC NEOPLASM MALIGNANT
     Dosage: 400 MG, BID
     Route: 048
     Dates: start: 20100914, end: 20101025
  31. SORAFENIB (RAF KINASE INHIBITOR) [Suspect]
     Dosage: 400 MG, BID
     Route: 048
     Dates: start: 20101208, end: 20110117
  32. PRAVIGARD PAC (COPACKAGED) [Concomitant]
     Indication: DYSLIPIDAEMIA
     Dosage: 40 MG
     Dates: start: 20091201, end: 20101001
  33. SOLU-MEDROL [Concomitant]
     Indication: PAIN PROPHYLAXIS
     Dosage: 60 MG
     Dates: start: 20110524, end: 20110530
  34. PRAVIGARD PAC (COPACKAGED) [Concomitant]
     Dosage: 1 PILL
     Dates: start: 20110329, end: 20110503
  35. CARBOSYLANE [Concomitant]
     Indication: FLATULENCE
     Dosage: UNK
     Dates: start: 20100914, end: 20101001
  36. ACETAMINOPHEN [Concomitant]
     Indication: HEADACHE
     Dosage: 3 G, PRN
     Dates: start: 20101014, end: 20101116
  37. SODIUM CHLORIDE [Concomitant]
     Indication: DEHYDRATION
     Dosage: UNK
     Dates: start: 20110524, end: 20110530
  38. FUNGIZONE [Concomitant]
     Indication: ODYNOPHAGIA
     Dosage: UNK
     Dates: start: 20110525, end: 20110530
  39. ERLOTINIB HYDROCHLORIDE [Suspect]
     Dosage: 150 MG, QD
     Route: 048
     Dates: start: 20101026, end: 20101207
  40. ERLOTINIB HYDROCHLORIDE [Suspect]
     Dosage: 150 MG, QD
     Route: 048
     Dates: start: 20101208, end: 20110117
  41. SORAFENIB (RAF KINASE INHIBITOR) [Suspect]
     Dosage: 400 MG, BID
     Route: 048
     Dates: start: 20101026, end: 20101207
  42. SORAFENIB (RAF KINASE INHIBITOR) [Suspect]
     Dosage: 400 MG, BID
     Route: 048
     Dates: start: 20110118, end: 20110228
  43. SORAFENIB (RAF KINASE INHIBITOR) [Suspect]
     Dosage: 400 MG, BID
     Route: 048
     Dates: end: 20110504
  44. ACETAMINOPHEN [Concomitant]
     Indication: PAIN PROPHYLAXIS
     Dosage: 3G PRN
     Dates: start: 20110503
  45. FORLAX [Concomitant]
     Indication: CONSTIPATION PROPHYLAXIS
     Dosage: UNKNOWN
     Dates: start: 20110401
  46. FLUCONAZOLE [Concomitant]
     Indication: ODYNOPHAGIA
     Dosage: UNK
     Dates: start: 20110525, end: 20110530

REACTIONS (2)
  - ASCITES [None]
  - GENERAL PHYSICAL HEALTH DETERIORATION [None]
